FAERS Safety Report 4621582-0 (Version None)
Quarter: 2005Q1

REPORT INFORMATION
  Report Type: 
  Country: None (occurrence: None)
  Receive Date: 20050328
  Receipt Date: 20020408
  Transmission Date: 20050727
  Serious: Yes (Hospitalization)
  Sender: FDA-Public Use
  Company Number: 3562

PATIENT
  Age: 89 Year
  Sex: Female

DRUGS (8)
  1. AMIKACIN [Suspect]
     Dates: end: 20020224
  2. CEFTRIAXONE [Suspect]
     Dosage: IV
     Route: 042
     Dates: start: 20020208, end: 20020218
  3. CIPROFLOXACIN [Suspect]
     Dosage: 750 MG BID; PO
     Route: 048
     Dates: start: 20020208, end: 20020222
  4. IMIPENEM [Suspect]
     Dosage: 500 MG BID; IV
     Route: 042
     Dates: start: 20020208, end: 20020222
  5. CILASTATIN [Suspect]
     Dosage: IV
     Route: 042
     Dates: start: 20020213, end: 20020222
  6. CEFEPIME [Suspect]
     Dosage: 100 MG BID; IV
     Route: 042
     Dates: start: 20020213
  7. TEICOPLANIN [Suspect]
     Dates: end: 20020224
  8. AZTREONAM [Suspect]

REACTIONS (1)
  - RASH MACULO-PAPULAR [None]
